FAERS Safety Report 23734354 (Version 3)
Quarter: 2024Q2

REPORT INFORMATION
  Report Type: Spontaneous
  Country: AU (occurrence: AU)
  Receive Date: 20240412
  Receipt Date: 20240521
  Transmission Date: 20240716
  Serious: Yes (Hospitalization, Other)
  Sender: FDA-Public Use
  Company Number: AU-Accord-417464

PATIENT
  Age: 79 Year
  Sex: Female
  Weight: 53.7 kg

DRUGS (14)
  1. CARBOPLATIN [Suspect]
     Active Substance: CARBOPLATIN
     Indication: Small cell lung cancer limited stage
     Dosage: Q3W
     Route: 042
     Dates: start: 20240221, end: 20240221
  2. ETOPOSIDE [Suspect]
     Active Substance: ETOPOSIDE
     Indication: Small cell lung cancer limited stage
     Dosage: Q3W, DAY 1 TO DAY 3 (D1-D3) OF EACH CYCLE
     Route: 042
     Dates: start: 20210221
  3. LIPITOR [Concomitant]
     Active Substance: ATORVASTATIN CALCIUM
     Indication: Blood cholesterol increased
     Route: 048
     Dates: start: 2017
  4. ASPIRIN [Concomitant]
     Active Substance: ASPIRIN
     Indication: Prophylaxis
     Route: 048
     Dates: start: 2021
  5. CALCIUM [Concomitant]
     Active Substance: CALCIUM
     Indication: Prophylaxis
     Dosage: 1 TABLET, QD
     Route: 048
     Dates: start: 2021
  6. FISH OIL [Concomitant]
     Active Substance: FISH OIL
     Indication: Prophylaxis
     Dosage: 1 TABLET, QD
     Route: 048
     Dates: start: 2021
  7. MAXOLON [Concomitant]
     Active Substance: METOCLOPRAMIDE HYDROCHLORIDE
     Indication: Nausea
     Dosage: PRN
     Route: 048
     Dates: start: 20240221
  8. COLOXYL WITH SENNA [Concomitant]
     Indication: Constipation
     Dosage: 1-2 TABLETS, PRN
     Route: 048
     Dates: start: 20240226
  9. DEXAMETHASONE [Concomitant]
     Active Substance: DEXAMETHASONE
     Indication: Prophylaxis of nausea and vomiting
     Dosage: PRN; ON DAYS 1,2,3 OF EACH CYCLE
     Route: 042
     Dates: start: 20210221
  10. NETUPITANT\PALONOSETRON HYDROCHLORIDE [Concomitant]
     Active Substance: NETUPITANT\PALONOSETRON HYDROCHLORIDE
     Indication: Premedication
     Dosage: IMMEDIATELY(STAT);  DAY 1 OF CYCLE
     Route: 048
     Dates: start: 20240221
  11. CYCLIZINE [Concomitant]
     Active Substance: CYCLIZINE
     Indication: Nausea
     Dosage: STRENGTH: 0.5, AS NEEDED (PRN)
     Route: 048
     Dates: start: 20240306
  12. DEXAMETHASONE [Concomitant]
     Active Substance: DEXAMETHASONE
     Dosage: PRN; ON DAYS 4,5 OF EACH CYCLE
     Route: 048
  13. CARBOPLATIN [Suspect]
     Active Substance: CARBOPLATIN
     Indication: Small cell lung cancer limited stage
     Dosage: Q3W
     Route: 042
     Dates: start: 20240402, end: 20240402
  14. ETOPOSIDE [Suspect]
     Active Substance: ETOPOSIDE
     Indication: Small cell lung cancer limited stage
     Dosage: Q3W, DAY 1 TO DAY 3 (D1-D3) OF EACH CYCLE
     Route: 042
     Dates: start: 20210402

REACTIONS (1)
  - Neutropenic sepsis [Recovered/Resolved]

NARRATIVE: CASE EVENT DATE: 20240307
